FAERS Safety Report 7771223-9 (Version None)
Quarter: 2011Q3

REPORT INFORMATION
  Report Type: 
  Country: None (occurrence: None)
  Receive Date: 20110922
  Receipt Date: 20110217
  Transmission Date: 20111222
  Serious: No
  Sender: FDA-Public Use
  Company Number: US-ASTRAZENECA-2011SE09458

PATIENT
  Sex: Female

DRUGS (2)
  1. SEROQUEL [Suspect]
     Route: 048
     Dates: start: 20080101
  2. RISPERIDONE [Concomitant]

REACTIONS (7)
  - CRYING [None]
  - INSOMNIA [None]
  - FATIGUE [None]
  - DRUG DOSE OMISSION [None]
  - DEPRESSION [None]
  - PAIN [None]
  - SOMNOLENCE [None]
